FAERS Safety Report 4557038-3 (Version None)
Quarter: 2005Q1

REPORT INFORMATION
  Report Type: 
  Country: None (occurrence: None)
  Receive Date: 20050120
  Receipt Date: 20050107
  Transmission Date: 20050727
  Serious: Yes (Hospitalization)
  Sender: FDA-Public Use
  Company Number: GB-JNJFOC-20050101849

PATIENT
  Age: 79 Year
  Sex: Female

DRUGS (5)
  1. GALANTAMINE [Suspect]
     Indication: DEMENTIA
     Route: 049
     Dates: start: 20040914, end: 20040921
  2. MIRTAZAPINE [Concomitant]
     Indication: DEPRESSION
     Dosage: 45MG AT NIGHT
     Route: 065
     Dates: start: 20040907, end: 20041005
  3. QUETIAPINE [Concomitant]
     Dosage: 25MG-75MG AT NIGHT TIME
     Route: 065
     Dates: start: 20040713
  4. TEMAZEPAM [Concomitant]
     Indication: INSOMNIA
     Route: 065
     Dates: start: 20040705
  5. FRUSEMIDE [Concomitant]
     Indication: OEDEMA
     Route: 065
     Dates: start: 20040802

REACTIONS (3)
  - DEPRESSION [None]
  - PARANOIA [None]
  - PSYCHOTIC DISORDER [None]
